FAERS Safety Report 6057190-7 (Version None)
Quarter: 2009Q1

REPORT INFORMATION
  Report Type: 
  Country: None (occurrence: None)
  Receive Date: 20090129
  Receipt Date: 20080228
  Transmission Date: 20090719
  Serious: Yes (Other)
  Sender: FDA-Public Use
  Company Number: A0712473A

PATIENT
  Sex: Male

DRUGS (1)
  1. WELLBUTRIN [Suspect]
     Indication: DRUG USE FOR UNKNOWN INDICATION
     Route: 065

REACTIONS (1)
  - CONVULSION [None]
